FAERS Safety Report 23571408 (Version 5)
Quarter: 2024Q3

REPORT INFORMATION
  Report Type: Report from Study
  Country: US (occurrence: US)
  Receive Date: 20240227
  Receipt Date: 20240830
  Transmission Date: 20241017
  Serious: Yes (Hospitalization, Other)
  Sender: PFIZER
  Company Number: US-PFIZER INC-202400049254

PATIENT
  Age: 41 Year
  Sex: Male

DRUGS (5)
  1. OXBRYTA [Suspect]
     Active Substance: VOXELOTOR
     Dosage: 1500 MG ONCE DAILY
     Route: 048
  2. OXBRYTA [Suspect]
     Active Substance: VOXELOTOR
     Dosage: 1500 MG DAILY
  3. OXBRYTA [Suspect]
     Active Substance: VOXELOTOR
     Dosage: 2 TABS DAILY
  4. OXBRYTA [Suspect]
     Active Substance: VOXELOTOR
     Dosage: 500 MG DAILY
  5. OXBRYTA [Suspect]
     Active Substance: VOXELOTOR
     Dosage: 500 MG DAILY
     Route: 048

REACTIONS (6)
  - Sickle cell anaemia with crisis [Recovered/Resolved]
  - Pneumonia [Recovered/Resolved]
  - Diarrhoea [Recovered/Resolved]
  - Dyspepsia [Unknown]
  - Off label use [Unknown]
  - Product dose omission issue [Unknown]

NARRATIVE: CASE EVENT DATE: 20240208
